FAERS Safety Report 7198428-2 (Version None)
Quarter: 2010Q4

REPORT INFORMATION
  Report Type: 
  Country: None (occurrence: None)
  Receive Date: 20101227
  Receipt Date: 20101214
  Transmission Date: 20110411
  Serious: Yes (Other)
  Sender: FDA-Public Use
  Company Number: ES-ASTELLAS-2010EU006848

PATIENT
  Sex: Female

DRUGS (3)
  1. TACROLIMUS SYSTEMIC [Suspect]
     Indication: INTESTINAL TRANSPLANT
     Dosage: UNK MG/KG, BID
     Route: 048
  2. METHYLPREDNISOLONE [Suspect]
     Indication: INTESTINAL TRANSPLANT
     Dosage: 10 MG/KG, UNKNOWN/D
     Route: 065
  3. BASILIXIMAB [Suspect]
     Indication: INTESTINAL TRANSPLANT
     Dosage: 12 MG/M2, UNKNOWN/D
     Route: 065

REACTIONS (2)
  - ANAEMIA HAEMOLYTIC AUTOIMMUNE [None]
  - EVANS SYNDROME [None]
